FAERS Safety Report 24251419 (Version 1)
Quarter: 2024Q3

REPORT INFORMATION
  Report Type: Spontaneous
  Country: US (occurrence: US)
  Receive Date: 20240826
  Receipt Date: 20240826
  Transmission Date: 20241017
  Serious: No
  Sender: BAUSCH AND LOMB
  Company Number: US-BAUSCHBL-2024BNL031892

PATIENT
  Age: 84 Year
  Sex: Female
  Weight: 52.16 kg

DRUGS (2)
  1. XIIDRA [Suspect]
     Active Substance: LIFITEGRAST
     Indication: Dry eye
     Route: 047
     Dates: start: 20240802
  2. XIIDRA [Suspect]
     Active Substance: LIFITEGRAST
     Route: 047
     Dates: end: 20240812

REACTIONS (11)
  - Oropharyngeal pain [Not Recovered/Not Resolved]
  - Dysphonia [Not Recovered/Not Resolved]
  - Dizziness [Not Recovered/Not Resolved]
  - Sleep disorder [Not Recovered/Not Resolved]
  - Visual impairment [Not Recovered/Not Resolved]
  - Pain [Not Recovered/Not Resolved]
  - Condition aggravated [Not Recovered/Not Resolved]
  - Loss of personal independence in daily activities [Not Recovered/Not Resolved]
  - Patient dissatisfaction with treatment [Unknown]
  - Intentional product use issue [Unknown]
  - Insurance issue [Unknown]

NARRATIVE: CASE EVENT DATE: 20240801
